FAERS Safety Report 25289369 (Version 2)
Quarter: 2025Q3

REPORT INFORMATION
  Report Type: Spontaneous
  Country: KG (occurrence: KG)
  Receive Date: 20250509
  Receipt Date: 20250804
  Transmission Date: 20251021
  Serious: Yes (Disabling, Other)
  Sender: VIIV
  Company Number: KG-VIIV HEALTHCARE-KG2025051569

PATIENT
  Age: 19 Year
  Sex: Female

DRUGS (2)
  1. DOLUTEGRAVIR [Suspect]
     Active Substance: DOLUTEGRAVIR
     Indication: HIV infection
  2. ABACAVIR SULFATE\LAMIVUDINE [Suspect]
     Active Substance: ABACAVIR SULFATE\LAMIVUDINE
     Indication: HIV infection

REACTIONS (6)
  - Bone giant cell tumour benign [Unknown]
  - Osteosclerosis [Not Recovered/Not Resolved]
  - Exostosis [Not Recovered/Not Resolved]
  - Fibrosis [Unknown]
  - Synovitis [Unknown]
  - Degenerative bone disease [Unknown]
